FAERS Safety Report 8165154-2 (Version None)
Quarter: 2012Q1

REPORT INFORMATION
  Report Type: 
  Country: None (occurrence: None)
  Receive Date: 20120227
  Receipt Date: 20120224
  Transmission Date: 20120608
  Serious: No
  Sender: FDA-Public Use
  Company Number: US-PFIZER INC-2012049970

PATIENT
  Sex: Female
  Weight: 57.596 kg

DRUGS (16)
  1. SYMBICORT [Concomitant]
     Indication: ASTHMA
  2. ALBUTEROL [Concomitant]
     Indication: CHRONIC OBSTRUCTIVE PULMONARY DISEASE
  3. VITAMIN D [Concomitant]
     Dosage: 5000 IU, 1X/DAY
  4. OXYGEN [Concomitant]
     Indication: CHRONIC OBSTRUCTIVE PULMONARY DISEASE
  5. CHANTIX [Suspect]
     Indication: SMOKING CESSATION THERAPY
     Dosage: 0.5 MG, 1X/DAY
     Route: 048
     Dates: start: 20070101, end: 20070101
  6. SYMBICORT [Concomitant]
     Indication: EMPHYSEMA
     Dosage: 160/4.5 MG, 2X/DAY
  7. ALBUTEROL [Concomitant]
     Indication: ASTHMA
  8. LIPITOR [Concomitant]
     Dosage: 20 MG, UNK
  9. CHANTIX [Suspect]
     Dosage: 0.5 MG, 1X/DAY
     Route: 048
     Dates: start: 20120201
  10. SYMBICORT [Concomitant]
     Indication: CHRONIC OBSTRUCTIVE PULMONARY DISEASE
  11. REMERON [Concomitant]
     Indication: DEPRESSION
     Dosage: 50 MG, UNK
  12. OXYGEN [Concomitant]
     Indication: EMPHYSEMA
     Dosage: UNK
  13. XANAX [Concomitant]
     Indication: ANXIETY
     Dosage: 1 MG, 3X/DAY
  14. CHANTIX [Suspect]
     Dosage: UNK
     Route: 048
     Dates: start: 20120221, end: 20120201
  15. ALBUTEROL [Concomitant]
     Indication: EMPHYSEMA
     Dosage: UNK, AS NEEDED
  16. OXYGEN [Concomitant]
     Indication: ASTHMA

REACTIONS (4)
  - ABNORMAL DREAMS [None]
  - HIGH DENSITY LIPOPROTEIN ABNORMAL [None]
  - LOW DENSITY LIPOPROTEIN ABNORMAL [None]
  - INSOMNIA [None]
